FAERS Safety Report 9316454 (Version 1)
Quarter: 2013Q1

REPORT INFORMATION
  Report Type: Spontaneous
  Country: PT (occurrence: None)
  Receive Date: 20121109
  Receipt Date: 20121109
  Transmission Date: 20140127
  Serious: Yes (Other)
  Sender: FDA-Public Use
  Company Number: 2011S1000745

PATIENT
  Sex: 0

DRUGS (3)
  1. CUBICIN (DAPTOMYCIN) [Suspect]
  2. ENOXAPARIN [Concomitant]
  3. ACE INHIBITOR NOS [Concomitant]

REACTIONS (4)
  - Grand mal convulsion [None]
  - Ischaemia [None]
  - Loss of consciousness [None]
  - Muscle rigidity [None]
